FAERS Safety Report 8813563 (Version 4)
Quarter: 2012Q4

REPORT INFORMATION
  Report Type: 
  Country: JP (occurrence: JP)
  Receive Date: 20120927
  Receipt Date: 20121217
  Transmission Date: 20130627
  Serious: Yes (Other)
  Sender: FDA-Public Use
  Company Number: JP-AMGEN-JPNSP2012060845

PATIENT
  Age: 71 Year
  Sex: Female
  Weight: 41 kg

DRUGS (13)
  1. RANMARK [Suspect]
     Indication: BREAST CANCER
     Dosage: 120 mg, UNK
     Route: 058
     Dates: start: 201204, end: 20120914
  2. ZOMETA [Suspect]
     Indication: BREAST CANCER
     Dosage: 4
     Route: 042
     Dates: start: 20110204, end: 20120330
  3. ZOMETA [Suspect]
     Dosage: 4
     Route: 042
     Dates: start: 20110204, end: 20120330
  4. FASLODEX [Concomitant]
     Indication: BREAST CANCER
     Route: 030
     Dates: start: 20120406
  5. PROTECADIN [Concomitant]
     Indication: GASTRITIS
     Dosage: UNK UNK, bid
     Route: 048
     Dates: start: 20110408
  6. LYRICA [Concomitant]
     Indication: NEUROPATHY PERIPHERAL
     Dosage: UNK UNK, bid
     Route: 048
     Dates: start: 20111214
  7. HALCION [Concomitant]
     Indication: INSOMNIA
     Dosage: UNK UNK, qd
     Route: 048
     Dates: start: 20090814
  8. DETRUSITOL [Concomitant]
     Indication: HYPERTONIC BLADDER
     Dosage: UNK UNK, qd
     Route: 048
     Dates: start: 20080924
  9. DETRUSITOL [Concomitant]
     Indication: HYPERTONIC BLADDER
  10. LIPITOR [Concomitant]
     Indication: HYPERLIPIDAEMIA
     Dosage: UNK UNK, qd
     Route: 048
     Dates: start: 20120420
  11. MAGLAX [Concomitant]
     Indication: GASTRITIS
     Dosage: UNK UNK, tid
     Route: 048
     Dates: start: 20100924
  12. MERISLON [Concomitant]
     Dosage: Unknown
     Route: 065
  13. TRAVELMIN [Concomitant]
     Dosage: Unknown
     Route: 065

REACTIONS (1)
  - Osteonecrosis of jaw [Recovering/Resolving]
